FAERS Safety Report 14385397 (Version 3)
Quarter: 2019Q2

REPORT INFORMATION
  Report Type: Spontaneous
  Country: US (occurrence: US)
  Receive Date: 20180115
  Receipt Date: 20190417
  Transmission Date: 20190711
  Serious: Yes (Other)
  Sender: FDA-Public Use
  Company Number: US-SA-2016SA232555

PATIENT
  Age: 71 Year
  Sex: Female
  Weight: 73 kg

DRUGS (3)
  1. DOCETAXEL. [Suspect]
     Active Substance: DOCETAXEL
     Indication: BREAST CANCER FEMALE
     Dosage: 161 (UNKNOWN UNIT), Q3W
     Route: 042
     Dates: start: 20120612, end: 20120612
  2. INSULIN [Concomitant]
     Active Substance: INSULIN NOS
  3. DOCETAXEL. [Suspect]
     Active Substance: DOCETAXEL
     Dosage: 161 (UNKNOWN UNIT), Q3W
     Route: 042
     Dates: start: 20120727, end: 20120727

REACTIONS (6)
  - Impaired quality of life [Unknown]
  - Anxiety [Unknown]
  - Psychological trauma [Unknown]
  - Pain [Unknown]
  - Alopecia [Not Recovered/Not Resolved]
  - Emotional distress [Unknown]

NARRATIVE: CASE EVENT DATE: 20120705
